FAERS Safety Report 10683352 (Version 2)
Quarter: 2014Q4

REPORT INFORMATION
  Report Type: Spontaneous
  Country: MX (occurrence: MX)
  Receive Date: 20141230
  Receipt Date: 20141230
  Transmission Date: 20150529
  Serious: Yes (Life-Threatening, Hospitalization)
  Sender: FDA-Public Use
  Company Number: MX-ASTRAZENECA-2014SE91824

PATIENT
  Age: 63 Year
  Sex: Male
  Weight: 75 kg

DRUGS (5)
  1. MISOPOROLOL [Concomitant]
     Route: 065
     Dates: start: 20141111
  2. BRILINTA [Suspect]
     Active Substance: TICAGRELOR
     Route: 048
     Dates: start: 20141108, end: 20141118
  3. ASPIRIN. [Concomitant]
     Active Substance: ASPIRIN
     Route: 065
     Dates: start: 20141111
  4. ATORVASTATIN [Concomitant]
     Active Substance: ATORVASTATIN
     Route: 065
     Dates: start: 20141111
  5. BRILINTA [Suspect]
     Active Substance: TICAGRELOR
     Route: 048
     Dates: start: 20141111, end: 20141118

REACTIONS (13)
  - Haemorrhage [Unknown]
  - Leukocytosis [Not Recovered/Not Resolved]
  - Gastric haemorrhage [Recovered/Resolved]
  - Dyspnoea [Unknown]
  - Ventricular fibrillation [Recovered/Resolved]
  - Acute myocardial infarction [Unknown]
  - Application site haemorrhage [Not Recovered/Not Resolved]
  - Acute pulmonary oedema [Unknown]
  - Pyrexia [Recovered/Resolved]
  - Chest pain [Recovered/Resolved]
  - Haemoptysis [Unknown]
  - Cough [Unknown]
  - Thrombocytopenia [Unknown]

NARRATIVE: CASE EVENT DATE: 20141108
